FAERS Safety Report 5484758-9 (Version None)
Quarter: 2007Q4

REPORT INFORMATION
  Report Type: 
  Country: None (occurrence: None)
  Receive Date: 20071010
  Receipt Date: 20071001
  Transmission Date: 20080405
  Serious: Yes (Other)
  Sender: FDA-Public Use
  Company Number: 2007AL002729

PATIENT
  Age: 67 Year
  Sex: Male

DRUGS (10)
  1. FLUOXETINE [Suspect]
     Indication: DEPRESSION
     Dosage: 20 MG; BID;
  2. DILTIAZEM [Concomitant]
  3. SIMVASTATIN [Concomitant]
  4. PERINDOPRIL ERBUMINE [Concomitant]
  5. GLICLAZIDE [Concomitant]
  6. METFORMIN [Concomitant]
  7. ACETYLSALICYLIC ACID [Concomitant]
  8. ROSIGLITAZONE [Concomitant]
  9. ACOMPLIA [Concomitant]
  10. DIHYDROCODEINE BITARTRATE INJ [Concomitant]

REACTIONS (1)
  - DRUG WITHDRAWAL SYNDROME [None]
